FAERS Safety Report 4316657-X (Version None)
Quarter: 2004Q1

REPORT INFORMATION
  Report Type: 
  Country: None (occurrence: None)
  Receive Date: 20040312
  Receipt Date: 20040305
  Transmission Date: 20041129
  Serious: Yes (Death, Congenital Anomaly)
  Sender: FDA-Public Use
  Company Number: 04-03-0334

PATIENT
  Sex: Female

DRUGS (3)
  1. ALBUTEROL [Suspect]
     Dosage: TRANSPLACENTAL
     Route: 064
  2. QVAR 40 [Suspect]
     Dosage: TRANSPLACENTAL
     Route: 064
  3. CANDESARTAN [Suspect]
     Dosage: TRANSPLACENTAL
     Route: 064

REACTIONS (18)
  - AMNIOCENTESIS ABNORMAL [None]
  - AMNIOTIC CAVITY DISORDER [None]
  - ANURIA [None]
  - BLADDER AGENESIS [None]
  - COMPLICATIONS OF MATERNAL EXPOSURE TO THERAPEUTIC DRUGS [None]
  - CONGENITAL ABSENCE OF CRANIAL VAULT [None]
  - CONGENITAL FOOT MALFORMATION [None]
  - CRANIAL SUTURES WIDENING [None]
  - DRUG EXPOSURE DURING PREGNANCY [None]
  - FOETAL GROWTH RETARDATION [None]
  - HYPOSPADIAS [None]
  - HYPOTENSION [None]
  - JOINT CONTRACTURE [None]
  - KIDNEY MALFORMATION [None]
  - PULMONARY CONGESTION [None]
  - RENAL AGENESIS [None]
  - SKULL MALFORMATION [None]
  - SUDDEN DEATH [None]
